FAERS Safety Report 23642522 (Version 1)
Quarter: 2024Q1

REPORT INFORMATION
  Report Type: Spontaneous
  Country: TW (occurrence: TW)
  Receive Date: 20240318
  Receipt Date: 20240318
  Transmission Date: 20240410
  Serious: Yes (Hospitalization)
  Sender: FDA-Public Use
  Company Number: TW-Atnahs Limited-ATNAHS20240300727

PATIENT
  Age: 60 Year
  Sex: Female

DRUGS (1)
  1. BONVIVA [Suspect]
     Active Substance: IBANDRONATE SODIUM
     Indication: Product used for unknown indication
     Dosage: 3 MG/3 ML SOLUTION FOR INJECTION
     Route: 065
     Dates: start: 20240304

REACTIONS (2)
  - Hypoaesthesia [Unknown]
  - Myalgia [Unknown]
